FAERS Safety Report 9230284 (Version 1)
Quarter: 2013Q2

REPORT INFORMATION
  Report Type: Spontaneous
  Country: US (occurrence: None)
  Receive Date: 20130411
  Receipt Date: 20130411
  Transmission Date: 20140414
  Serious: Yes (Hospitalization)
  Sender: FDA-Public Use
  Company Number: 001506443A

PATIENT
  Age: 62 Year
  Sex: Female

DRUGS (4)
  1. PROACTIV SOLUTION RENEWING CLEANSER [Suspect]
     Indication: ACNE
     Dosage: DERMAL
     Dates: start: 20130215, end: 20130217
  2. PROACTIV SOLUTION REPAIRING TREATMENT [Suspect]
     Indication: ACNE
     Dosage: DERMAL
     Dates: start: 20130215, end: 20130217
  3. PROACTIV SOLUTION OIL FREE MOISTURE SPF 15 [Suspect]
     Indication: ACNE
     Dosage: DERMAL
     Dates: start: 20130215, end: 20130217
  4. PROACTIV SOLUTION ADVANCED DAILY OIL CONTROL [Suspect]
     Indication: ACNE
     Dosage: DERMAL
     Dates: start: 20130215, end: 20130217

REACTIONS (6)
  - Burning sensation [None]
  - Pruritus [None]
  - Swelling [None]
  - Urticaria [None]
  - Swelling face [None]
  - Dyspnoea [None]
